FAERS Safety Report 17075779 (Version 1)
Quarter: 2019Q4

REPORT INFORMATION
  Report Type: Spontaneous
  Country: US (occurrence: US)
  Receive Date: 20191126
  Receipt Date: 20191126
  Transmission Date: 20200122
  Serious: No
  Sender: FDA-Public Use
  Company Number: US-PFIZER INC-2019510323

PATIENT
  Age: 60 Year
  Sex: Female
  Weight: 72.57 kg

DRUGS (13)
  1. METAXALONE. [Suspect]
     Active Substance: METAXALONE
     Indication: OSTEOARTHRITIS
  2. VITAMIN B12 [Concomitant]
     Active Substance: CYANOCOBALAMIN
     Indication: ASTHENIA
     Dosage: 1000 UG, [ONCE OR TWICE A WEEK]
  3. CLONAZEPAM. [Concomitant]
     Active Substance: CLONAZEPAM
     Indication: INSOMNIA
  4. ONE A DAY [MINERALS NOS;VITAMINS NOS] [Concomitant]
     Indication: VITAMIN SUPPLEMENTATION
     Dosage: 1 DF, 1X/DAY [WHEN SHE REMEMBERS TO TAKE IT]
  5. FISH OIL [Concomitant]
     Active Substance: FISH OIL
     Indication: CARDIAC DISORDER
     Dosage: UNK, ONCE OR TWICE A WEEK
  6. METAXALONE. [Suspect]
     Active Substance: METAXALONE
     Indication: INTERVERTEBRAL DISC PROTRUSION
  7. PAROXETINE. [Concomitant]
     Active Substance: PAROXETINE
     Indication: DEPRESSION
     Dosage: 20 MG, 1X/DAY
  8. METAXALONE. [Suspect]
     Active Substance: METAXALONE
     Indication: FIBROMYALGIA
     Dosage: 800 MG, 3X/DAY
  9. CLONAZEPAM. [Concomitant]
     Active Substance: CLONAZEPAM
     Indication: ANXIETY
     Dosage: 1.5 MG, DAILY [0.5MG TABLET IN THE MORNING AND 1MG TABLET AT NIGHT]
  10. TRAMADOL. [Concomitant]
     Active Substance: TRAMADOL
     Indication: MUSCLE SPASMS
  11. MELOXICAM. [Concomitant]
     Active Substance: MELOXICAM
     Indication: OSTEOARTHRITIS
     Dosage: 15 MG, 1X/DAY
  12. TRAMADOL. [Concomitant]
     Active Substance: TRAMADOL
     Indication: PAIN
     Dosage: 50 MG, 4X/DAY
  13. SIMVASTATIN. [Concomitant]
     Active Substance: SIMVASTATIN
     Indication: BLOOD CHOLESTEROL INCREASED
     Dosage: 40 MG, 1X/DAY (ONE NIGHTLY)

REACTIONS (3)
  - Headache [Unknown]
  - Drug ineffective [Unknown]
  - Respiratory disorder [Unknown]
